FAERS Safety Report 15981299 (Version 1)
Quarter: 2019Q1

REPORT INFORMATION
  Report Type: Spontaneous
  Country: US (occurrence: US)
  Receive Date: 20190218
  Receipt Date: 20190218
  Transmission Date: 20190418
  Serious: No
  Sender: FDA-Public Use
  Company Number: None

PATIENT
  Age: 5 Week
  Sex: Male
  Weight: 4.05 kg

DRUGS (1)
  1. GRIPE WATER [Suspect]
     Active Substance: DIETARY SUPPLEMENT
     Indication: FLATULENCE
     Dosage: ?          QUANTITY:1 TEASPOON(S);?
     Route: 048
     Dates: start: 20190201, end: 20190217

REACTIONS (2)
  - Screaming [None]
  - Fluid intake reduced [None]

NARRATIVE: CASE EVENT DATE: 20190215
